FAERS Safety Report 11214419 (Version 3)
Quarter: 2019Q1

REPORT INFORMATION
  Report Type: Spontaneous
  Country: US (occurrence: US)
  Receive Date: 20150624
  Receipt Date: 20190213
  Transmission Date: 20190417
  Serious: Yes (Hospitalization, Other)
  Sender: FDA-Public Use
  Company Number: US-ASTRAZENECA-2014SE87453

PATIENT
  Sex: Female
  Weight: 131.5 kg

DRUGS (11)
  1. WATER PILL [Concomitant]
     Active Substance: UNSPECIFIED INGREDIENT
  2. METOPROLOL. [Concomitant]
     Active Substance: METOPROLOL
     Indication: BLOOD PRESSURE ABNORMAL
  3. LEVEMIR [Concomitant]
     Active Substance: INSULIN DETEMIR
  4. VITAMIN D [Concomitant]
     Active Substance: CHOLECALCIFEROL
  5. OMEGA 3 ACID [Concomitant]
  6. LOSARTAN. [Concomitant]
     Active Substance: LOSARTAN
     Indication: HYPERTENSION
  7. NOVOLOG [Concomitant]
     Active Substance: INSULIN ASPART
  8. BYETTA [Suspect]
     Active Substance: EXENATIDE
     Indication: DIABETES MELLITUS
     Route: 058
  9. BYETTA [Suspect]
     Active Substance: EXENATIDE
     Indication: DIABETES MELLITUS
     Route: 058
  10. BYETTA [Suspect]
     Active Substance: EXENATIDE
     Indication: DIABETES MELLITUS
     Dosage: 250 MCG / 2.4 ML PEN
     Route: 058
  11. LIPITOR [Concomitant]
     Active Substance: ATORVASTATIN CALCIUM

REACTIONS (12)
  - Device related infection [Unknown]
  - Diabetic neuropathy [Unknown]
  - Body height decreased [Unknown]
  - Weight fluctuation [Unknown]
  - Injection site haemorrhage [Unknown]
  - Infection [Unknown]
  - Urinary tract infection [Unknown]
  - Blood glucose increased [Recovered/Resolved]
  - Product quality issue [Unknown]
  - Nervousness [Unknown]
  - Nephrolithiasis [Unknown]
  - Overweight [Unknown]
